FAERS Safety Report 19087398 (Version 1)
Quarter: 2021Q2

REPORT INFORMATION
  Report Type: Spontaneous
  Country: FR (occurrence: FR)
  Receive Date: 20210402
  Receipt Date: 20210402
  Transmission Date: 20210717
  Serious: Yes (Death, Other)
  Sender: FDA-Public Use
  Company Number: FR-PURDUE-USA-2021-0239288

PATIENT
  Age: 25 Year
  Sex: Female

DRUGS (12)
  1. MORPHINE SULFATE (SIMILAR TO NDA 19?516) [Suspect]
     Active Substance: MORPHINE SULFATE
     Indication: DRUG ABUSE
     Dosage: UNK [DOSAGE TEXT: NON RENSEIGNEE]
     Route: 065
  2. HEROIN [Suspect]
     Active Substance: DIAMORPHINE
     Indication: DRUG DEPENDENCE
     Dosage: UNK [DOSAGE TEXT: NON RENSEIGNEE]
     Route: 065
  3. COCAINE [Suspect]
     Active Substance: COCAINE
     Indication: DRUG ABUSE
     Dosage: UNK [DOSAGE TEXT: NON RENSEIGNEE]
     Route: 065
  4. ALIMEMAZINE [Suspect]
     Active Substance: TRIMEPRAZINE
     Indication: DRUG ABUSE
     Dosage: UNK [DOSAGE TEXT: NON RENSEIGNEE]
     Route: 065
  5. BENZOYLECGONINE [Suspect]
     Active Substance: BENZOYLECGONINE
     Indication: DRUG ABUSE
     Dosage: UNK [DOSAGE TEXT: NON RENSEIGNEE]
     Route: 065
  6. LORMETAZEPAM [Suspect]
     Active Substance: LORMETAZEPAM
     Indication: DRUG ABUSE
     Dosage: UNK [DOSAGE TEXT: NON RENSEIGNEE]
     Route: 065
  7. HYDROXYZINE                        /00058402/ [Suspect]
     Active Substance: HYDROXYZINE HYDROCHLORIDE
     Indication: DRUG ABUSE
     Dosage: UNK [DOSAGE TEXT: NON RENSEIGNEE]
     Route: 065
  8. DIAZEPAM. [Suspect]
     Active Substance: DIAZEPAM
     Indication: DRUG ABUSE
     Dosage: UNK [DOSAGE TEXT: NON RENSEIGNEE]
     Route: 065
  9. NORDAZEPAM [Suspect]
     Active Substance: NORDAZEPAM
     Indication: DRUG ABUSE
     Dosage: UNK [DOSAGE TEXT: NON RENSEIGNEE]
     Route: 065
  10. ARIPIPRAZOLE. [Suspect]
     Active Substance: ARIPIPRAZOLE
     Indication: DRUG ABUSE
     Dosage: UNK [DOSAGE TEXT: NON RENSEIGNEE]
     Route: 065
  11. CODEINE [Suspect]
     Active Substance: CODEINE
     Indication: DRUG ABUSE
     Dosage: UNK [DOSAGE TEXT: NON RENSEIGNEE]
     Route: 065
  12. CANNABIS [Suspect]
     Active Substance: CANNABIS SATIVA SUBSP. INDICA TOP
     Indication: DRUG ABUSE
     Dosage: UNK [DOSAGE TEXT: NON RENSEIGNEE]
     Route: 065

REACTIONS (2)
  - Asphyxia [Fatal]
  - Drug abuse [Fatal]
